FAERS Safety Report 6222287-5 (Version None)
Quarter: 2009Q2

REPORT INFORMATION
  Report Type: 
  Country: None (occurrence: None)
  Receive Date: 20090611
  Receipt Date: 20090601
  Transmission Date: 20091009
  Serious: Yes (Other)
  Sender: FDA-Public Use
  Company Number: PHHY2009BR21800

PATIENT
  Sex: Male
  Weight: 11.1 kg

DRUGS (2)
  1. ELIDEL [Suspect]
     Indication: DERMATITIS ATOPIC
     Dosage: ONCE A DAY AFTER BATH
     Route: 061
     Dates: start: 20090531
  2. HIXIZINE [Concomitant]
     Indication: ANTIALLERGIC THERAPY
     Dosage: 2 ML, TID
     Route: 048
     Dates: start: 20090501

REACTIONS (4)
  - APPLICATION SITE ERYTHEMA [None]
  - APPLICATION SITE PRURITUS [None]
  - EYE SWELLING [None]
  - HYPERSENSITIVITY [None]
